FAERS Safety Report 9788376 (Version 1)
Quarter: 2013Q4

REPORT INFORMATION
  Report Type: Spontaneous
  Country: DE (occurrence: DE)
  Receive Date: 20131230
  Receipt Date: 20131230
  Transmission Date: 20140711
  Serious: Yes (Other)
  Sender: FDA-Public Use
  Company Number: DE-PERRIGO-13DE013060

PATIENT
  Sex: 0

DRUGS (2)
  1. NAPROXEN RX 250 MG 121 [Suspect]
     Indication: SPONDYLITIS
     Dosage: 1000 MG, QD
     Route: 048
  2. INFLIXIMAB [Suspect]
     Indication: SPONDYLITIS
     Dosage: 5 MG/KG
     Route: 042

REACTIONS (1)
  - Breast cancer [Unknown]
